FAERS Safety Report 6945468-1 (Version None)
Quarter: 2010Q3

REPORT INFORMATION
  Report Type: 
  Country: None (occurrence: None)
  Receive Date: 20100827
  Receipt Date: 20100818
  Transmission Date: 20110219
  Serious: Yes (Hospitalization, Other)
  Sender: FDA-Public Use
  Company Number: CN-ROCHE-721894

PATIENT
  Sex: Female
  Weight: 63 kg

DRUGS (3)
  1. MYCOPHENOLATE MOFETIL [Suspect]
     Indication: RENAL TRANSPLANT
     Dosage: 500 MG EVERY MORNING, AND 500 MG EVERY EVENING.
     Route: 048
     Dates: start: 19951201, end: 20070101
  2. MYCOPHENOLATE MOFETIL [Suspect]
     Dosage: 500 MG EVERY MORNING, AND 500 MG EVERY EVENING.
     Route: 048
     Dates: start: 20090801
  3. PROGRAF [Concomitant]
     Indication: RENAL TRANSPLANT
     Dosage: 2 MG EVERY MORNING, AND 1.5 MG EVERY EVENING
     Route: 048
     Dates: start: 19951201

REACTIONS (3)
  - ABDOMINAL DISCOMFORT [None]
  - DIARRHOEA [None]
  - TRANSPLANT FAILURE [None]
